FAERS Safety Report 25283359 (Version 1)
Quarter: 2025Q2

REPORT INFORMATION
  Report Type: Spontaneous
  Country: US (occurrence: None)
  Receive Date: 20250507
  Receipt Date: 20250507
  Transmission Date: 20250717
  Serious: Yes (Life-Threatening, Other)
  Sender: FDA-CTU
  Company Number: None

PATIENT
  Age: 28 Year
  Sex: Male
  Weight: 85.05 kg

DRUGS (6)
  1. HERBALS\TETRAHYDROCANNABINOL UNSPECIFIED [Suspect]
     Active Substance: HERBALS\TETRAHYDROCANNABINOL UNSPECIFIED
     Indication: Substance use
     Dosage: FREQUENCY : 4 TIMES A DAY;?
     Route: 055
  2. HERBALS\TETRAHYDROCANNABINOL UNSPECIFIED [Suspect]
     Active Substance: HERBALS\TETRAHYDROCANNABINOL UNSPECIFIED
     Indication: Anxiety
  3. DEVICE [Suspect]
     Active Substance: DEVICE
  4. VRAYLAR [Concomitant]
     Active Substance: CARIPRAZINE
  5. HYDROXYZINE [Concomitant]
     Active Substance: HYDROXYZINE HYDROCHLORIDE
  6. COGENTIN [Concomitant]
     Active Substance: BENZTROPINE MESYLATE

REACTIONS (8)
  - Product administered to patient of inappropriate age [None]
  - Product formulation issue [None]
  - Toxicity to various agents [None]
  - Loss of consciousness [None]
  - Respiratory arrest [None]
  - Product counterfeit [None]
  - Drug dependence [None]
  - Product design issue [None]

NARRATIVE: CASE EVENT DATE: 20250422
